FAERS Safety Report 24858674 (Version 1)
Quarter: 2025Q1

REPORT INFORMATION
  Report Type: Spontaneous
  Country: US (occurrence: US)
  Receive Date: 20250118
  Receipt Date: 20250118
  Transmission Date: 20250408
  Serious: Yes (Other)
  Sender: HETERO
  Company Number: US-HETERO-HET2025US00116

PATIENT
  Sex: Female
  Weight: 77 kg

DRUGS (1)
  1. HYDRALAZINE [Suspect]
     Active Substance: HYDRALAZINE HYDROCHLORIDE
     Indication: Blood pressure measurement
     Route: 048

REACTIONS (2)
  - Blood glucose increased [Unknown]
  - Blood pressure increased [Unknown]
